FAERS Safety Report 13208255 (Version 1)
Quarter: 2017Q1

REPORT INFORMATION
  Report Type: Spontaneous
  Country: US (occurrence: US)
  Receive Date: 20170209
  Receipt Date: 20170209
  Transmission Date: 20170428
  Serious: No
  Sender: FDA-Public Use
  Company Number: US-ROCHE-1362022

PATIENT
  Sex: Female

DRUGS (1)
  1. XOLAIR [Suspect]
     Active Substance: OMALIZUMAB
     Indication: CHRONIC SPONTANEOUS URTICARIA
     Dosage: 2 SHOTS
     Route: 065
     Dates: start: 2009

REACTIONS (12)
  - Urticaria [Unknown]
  - Hypersensitivity [Unknown]
  - Influenza [Unknown]
  - Drug ineffective [Unknown]
  - Somnolence [Unknown]
  - Pruritus [Unknown]
  - Idiopathic urticaria [Unknown]
  - Off label use [Unknown]
  - Migraine [Unknown]
  - Weight decreased [Unknown]
  - Fatigue [Unknown]
  - Nasopharyngitis [Unknown]

NARRATIVE: CASE EVENT DATE: 20140929
